FAERS Safety Report 14775965 (Version 2)
Quarter: 2018Q2

REPORT INFORMATION
  Report Type: Spontaneous
  Country: US (occurrence: US)
  Receive Date: 20180418
  Receipt Date: 20180524
  Transmission Date: 20180711
  Serious: No
  Sender: FDA-Public Use
  Company Number: US-NEUROCRINE BIOSCIENCES INC.-2018NBI00883

PATIENT
  Sex: Male
  Weight: 83.99 kg

DRUGS (7)
  1. INGREZZA [Suspect]
     Active Substance: VALBENAZINE
     Route: 048
     Dates: start: 20171024
  2. KLONOPIN [Suspect]
     Active Substance: CLONAZEPAM
  3. KLONOPIN [Suspect]
     Active Substance: CLONAZEPAM
     Indication: PRODUCT USED FOR UNKNOWN INDICATION
     Dates: start: 2017
  4. NUEDEXTA [Suspect]
     Active Substance: DEXTROMETHORPHAN HYDROBROMIDE\QUINIDINE SULFATE
     Indication: AFFECT LABILITY
  5. INGREZZA [Suspect]
     Active Substance: VALBENAZINE
     Route: 048
  6. KLONOPIN [Suspect]
     Active Substance: CLONAZEPAM
  7. INGREZZA [Suspect]
     Active Substance: VALBENAZINE
     Indication: TARDIVE DYSKINESIA
     Route: 048
     Dates: start: 20171016, end: 20171023

REACTIONS (5)
  - Somnolence [Not Recovered/Not Resolved]
  - Aggression [Recovering/Resolving]
  - Balance disorder [Recovering/Resolving]
  - Platelet count decreased [Not Recovered/Not Resolved]
  - Sedation [Not Recovered/Not Resolved]
